FAERS Safety Report 10029106 (Version 3)
Quarter: 2014Q2

REPORT INFORMATION
  Report Type: Spontaneous
  Country: US (occurrence: US)
  Receive Date: 20140321
  Receipt Date: 20140417
  Transmission Date: 20141212
  Serious: Yes (Other)
  Sender: FDA-Public Use
  Company Number: CHPA2014US004214

PATIENT
  Age: 57 Year
  Sex: Female

DRUGS (1)
  1. KERI ORIGINAL [Suspect]
     Indication: DRY SKIN
     Dosage: UNK
     Route: 061

REACTIONS (1)
  - Foot deformity [Unknown]
